FAERS Safety Report 9320153 (Version 3)
Quarter: 2014Q3

REPORT INFORMATION
  Report Type: Report from Study
  Country: CA (occurrence: CA)
  Receive Date: 20130530
  Receipt Date: 20140711
  Transmission Date: 20150326
  Serious: Yes (Death)
  Sender: FDA-Public Use
  Company Number: CA-TEVA-408230USA

PATIENT
  Sex: Male
  Weight: 106.2 kg

DRUGS (2)
  1. TREANDA [Suspect]
     Active Substance: BENDAMUSTINE HYDROCHLORIDE
     Indication: NON-HODGKIN^S LYMPHOMA UNSPECIFIED HISTOLOGY INDOLENT
     Dosage: REGIMEN #1
     Route: 042
     Dates: start: 20120807, end: 20120808
  2. TREANDA [Suspect]
     Active Substance: BENDAMUSTINE HYDROCHLORIDE
     Dosage: REGIMEN #2
     Route: 042
     Dates: start: 20120905

REACTIONS (1)
  - Peritonitis [Fatal]
